FAERS Safety Report 24245120 (Version 1)
Quarter: 2024Q3

REPORT INFORMATION
  Report Type: Spontaneous
  Country: US (occurrence: US)
  Receive Date: 20240823
  Receipt Date: 20240823
  Transmission Date: 20241016
  Serious: Yes (Other)
  Sender: FOUNDATION CONSUMER HEALTHCARE
  Company Number: US-FOUNDATIONCONSUMERHC-2024-US-042875

PATIENT
  Age: 14 Year
  Sex: Female

DRUGS (1)
  1. PLAN B ONE-STEP [Suspect]
     Active Substance: LEVONORGESTREL
     Indication: Abortion
     Dosage: ONE 1.5 MG TABLET
     Route: 048
     Dates: start: 2012, end: 2012

REACTIONS (8)
  - Endometriosis [Unknown]
  - Complication of pregnancy [Unknown]
  - Intentional product misuse [Recovered/Resolved]
  - Product use in unapproved indication [Recovered/Resolved]
  - Abortion spontaneous [Recovered/Resolved]
  - Amenorrhoea [Not Recovered/Not Resolved]
  - Menstruation irregular [Not Recovered/Not Resolved]
  - Polycystic ovarian syndrome [Unknown]

NARRATIVE: CASE EVENT DATE: 20120101
